FAERS Safety Report 23219119 (Version 1)
Quarter: 2023Q4

REPORT INFORMATION
  Report Type: Report from Study
  Country: BE (occurrence: BE)
  Receive Date: 20231122
  Receipt Date: 20231122
  Transmission Date: 20240110
  Serious: Yes (Hospitalization, Other)
  Sender: FDA-Public Use
  Company Number: BE-Boehringer Ingelheim GmbH, Germany-2014-BI-35443II

PATIENT
  Age: 48 Year
  Sex: Female
  Weight: 42.7 kg

DRUGS (5)
  1. NINTEDANIB [Suspect]
     Active Substance: NINTEDANIB
     Indication: Cervix cancer metastatic
     Route: 048
     Dates: start: 20140715, end: 20140728
  2. PACLITAXEL [Suspect]
     Active Substance: PACLITAXEL
     Indication: Cervix cancer metastatic
     Dosage: FORMULATION: INJECTION; DAILY DOSE: NONE
     Route: 042
     Dates: start: 20140714, end: 20140714
  3. PACLITAXEL [Suspect]
     Active Substance: PACLITAXEL
     Dosage: FORMULATION: INJECTION; STRENGTH: 1/3WK; DAILY DOSE: 175 MG/M2
     Route: 042
     Dates: start: 20140916, end: 20140916
  4. CARBOPLATIN [Suspect]
     Active Substance: CARBOPLATIN
     Indication: Cervix cancer metastatic
     Dosage: FORMULATION: INJECTION; DAILY DOSE: NONE
     Route: 042
     Dates: start: 20140714, end: 20140714
  5. CARBOPLATIN [Suspect]
     Active Substance: CARBOPLATIN
     Dosage: FORMULATION: INJECTION; STRENGTH: 1/3WK; DAILY DOSE: SAUC
     Route: 042
     Dates: start: 20140916, end: 20140916

REACTIONS (8)
  - Large intestinal obstruction [Recovered/Resolved]
  - Intestinal fistula [Not Recovered/Not Resolved]
  - Infection [Recovered/Resolved]
  - Infection [Recovered/Resolved]
  - Pyelonephritis [Recovered/Resolved]
  - Diarrhoea [Recovered/Resolved]
  - Diarrhoea [Recovered/Resolved]
  - Diarrhoea [Recovered/Resolved]

NARRATIVE: CASE EVENT DATE: 20140715
